FAERS Safety Report 9509426 (Version 1)
Quarter: 2013Q3

REPORT INFORMATION
  Report Type: Spontaneous
  Country: US (occurrence: US)
  Receive Date: 20130909
  Receipt Date: 20130909
  Transmission Date: 20140515
  Serious: Yes (Other)
  Sender: FDA-Public Use
  Company Number: US-BRISTOL-MYERS SQUIBB COMPANY-17293515

PATIENT
  Age: 45 Year
  Sex: Female
  Weight: 86.17 kg

DRUGS (2)
  1. ABILIFY [Suspect]
     Indication: DEPRESSION
     Dates: start: 201212
  2. LEXAPRO [Suspect]
     Indication: DEPRESSION
     Dates: start: 201212

REACTIONS (3)
  - Type 2 diabetes mellitus [Unknown]
  - Anxiety [Unknown]
  - Weight increased [Unknown]
